FAERS Safety Report 4928074-X (Version None)
Quarter: 2006Q1

REPORT INFORMATION
  Report Type: 
  Country: None (occurrence: None)
  Receive Date: 20060223
  Receipt Date: 20060206
  Transmission Date: 20060701
  Serious: Yes (Hospitalization)
  Sender: FDA-Public Use
  Company Number: DK200601001458

PATIENT
  Age: 65 Year
  Sex: Male
  Weight: 98.4 kg

DRUGS (10)
  1. SOMATROPIN(SOMATROPIN) VIAL [Suspect]
     Indication: GROWTH HORMONE DEFICIENCY
     Dosage: 0.3 MG, DAILY, (1/D) , SUBCUTANEOUS
     Route: 058
     Dates: start: 20020215
  2. LEVOTHYROXINE SODIUM [Concomitant]
  3. HYDROCORTISONE [Concomitant]
  4. TESTOSTERONE [Concomitant]
  5. MINIRIN [Concomitant]
  6. CALCIUM D3 ^STADA^ (CALCIUM, COLECALCIFEROL) [Concomitant]
  7. MYONIL (DILTIAZEM HYDROCHLORIDE) [Concomitant]
  8. DIMITONE (CARVEDILOL) [Concomitant]
  9. SIMVASTATIN [Concomitant]
  10. HUMATROPEN [Concomitant]

REACTIONS (2)
  - COMPRESSION FRACTURE [None]
  - OSTEOPOROSIS [None]
